FAERS Safety Report 5506738-7 (Version None)
Quarter: 2007Q4

REPORT INFORMATION
  Report Type: 
  Country: None (occurrence: None)
  Receive Date: 20071105
  Receipt Date: 20071024
  Transmission Date: 20080405
  Serious: Yes (Other)
  Sender: FDA-Public Use
  Company Number: GB-AMGEN-UK249997

PATIENT
  Sex: Male

DRUGS (4)
  1. PANITUMUMAB [Suspect]
     Indication: COLORECTAL CANCER
     Route: 042
     Dates: start: 20070118
  2. OXALIPLATIN [Suspect]
  3. LEUCOVORIN [Suspect]
  4. FLUOROURACIL [Suspect]

REACTIONS (1)
  - PULMONARY EMBOLISM [None]
